FAERS Safety Report 23569555 (Version 1)
Quarter: 2024Q1

REPORT INFORMATION
  Report Type: Spontaneous
  Country: EG (occurrence: EG)
  Receive Date: 20240227
  Receipt Date: 20240227
  Transmission Date: 20240410
  Serious: Yes (Death, Hospitalization)
  Sender: FDA-Public Use
  Company Number: EG-AMGEN-EGYSP2024035215

PATIENT
  Age: 15 Month
  Sex: Female

DRUGS (4)
  1. FILGRASTIM [Suspect]
     Active Substance: FILGRASTIM
     Indication: Neutropenia
     Dosage: UNK
     Route: 065
  2. MEROPENEM [Concomitant]
     Active Substance: MEROPENEM
     Route: 065
  3. VANCOMYCIN [Concomitant]
     Active Substance: VANCOMYCIN
     Route: 065
  4. CIDOFOVIR [Concomitant]
     Active Substance: CIDOFOVIR
     Indication: Adenovirus infection
     Dosage: 5 MILLIGRAM, KG/WEEKLY
     Route: 065

REACTIONS (10)
  - Multiple organ dysfunction syndrome [Fatal]
  - Adenovirus infection [Fatal]
  - Septic shock [Fatal]
  - Enterocolitis haemorrhagic [Fatal]
  - Neutropenia [Unknown]
  - Haemorrhagic diathesis [Unknown]
  - Acute kidney injury [Unknown]
  - Hypotension [Unknown]
  - Coagulopathy [Unknown]
  - Hypertransaminasaemia [Unknown]
